FAERS Safety Report 5791985-X (Version None)
Quarter: 2008Q2

REPORT INFORMATION
  Report Type: 
  Country: None (occurrence: None)
  Receive Date: 20080618
  Receipt Date: 20080310
  Transmission Date: 20081010
  Serious: Yes (Other)
  Sender: FDA-Public Use
  Company Number: 200811553US

PATIENT
  Age: 55 Year
  Sex: Male

DRUGS (5)
  1. LANTUS [Suspect]
     Dosage: 16 - 14 U HS SC
     Route: 058
     Dates: start: 20080101
  2. LANTUS [Suspect]
     Dosage: 12 U HS SC
     Route: 058
  3. INSULIN HUMAN [Concomitant]
  4. HUMALOG [Concomitant]
  5. ANTI-REJECTION MEDICATIONS [Concomitant]

REACTIONS (1)
  - HYPOGLYCAEMIA [None]
